FAERS Safety Report 8456897-1 (Version None)
Quarter: 2012Q2

REPORT INFORMATION
  Report Type: 
  Country: None (occurrence: None)
  Receive Date: 20120621
  Receipt Date: 20120612
  Transmission Date: 20120825
  Serious: Yes (Hospitalization, Other)
  Sender: FDA-Public Use
  Company Number: JP-VERTEX PHARMACEUTICALS INC.-AE-2012-005160

PATIENT
  Age: 63 Year
  Sex: Male

DRUGS (8)
  1. TELAVIC (TELAPREVIR) [Suspect]
     Route: 048
     Dates: start: 20120323, end: 20120329
  2. ACETAMINOPHEN [Concomitant]
     Route: 048
     Dates: start: 20120229, end: 20120302
  3. TELAVIC (TELAPREVIR) [Suspect]
     Indication: HEPATITIS C
     Route: 048
     Dates: start: 20120224, end: 20120322
  4. REBETOL [Concomitant]
     Indication: HEPATITIS C
     Route: 048
     Dates: start: 20120224, end: 20120315
  5. REBETOL [Concomitant]
     Route: 048
     Dates: start: 20120316, end: 20120322
  6. REBETOL [Concomitant]
     Route: 048
     Dates: start: 20120323, end: 20120329
  7. PEG-INTRON [Concomitant]
     Indication: HEPATITIS C
     Route: 058
     Dates: start: 20120224, end: 20120322
  8. PEG-INTRON [Concomitant]
     Route: 058
     Dates: start: 20120323, end: 20120329

REACTIONS (8)
  - MALAISE [None]
  - ANAEMIA [None]
  - DECREASED APPETITE [None]
  - NAUSEA [None]
  - RASH [None]
  - INSOMNIA [None]
  - DEPRESSION [None]
  - VOMITING [None]
